FAERS Safety Report 8314344-4 (Version None)
Quarter: 2012Q2

REPORT INFORMATION
  Report Type: 
  Country: None (occurrence: None)
  Receive Date: 20120426
  Receipt Date: 20120423
  Transmission Date: 20120825
  Serious: No
  Sender: FDA-Public Use
  Company Number: US-PFIZER INC-2012100456

PATIENT
  Sex: Male
  Weight: 77.098 kg

DRUGS (4)
  1. XANAX [Concomitant]
     Dosage: UNK
  2. AMBIEN [Concomitant]
     Dosage: UNK
  3. SUTENT [Suspect]
     Dosage: UNK
     Route: 048
  4. SUTENT [Suspect]
     Indication: NEOPLASM
     Dosage: 12.5 MG, 4X/DAY
     Route: 048
     Dates: start: 20110501

REACTIONS (4)
  - FATIGUE [None]
  - HYPERTENSION [None]
  - BLOOD ALCOHOL INCREASED [None]
  - INSOMNIA [None]
